FAERS Safety Report 8500767-7 (Version None)
Quarter: 2012Q3

REPORT INFORMATION
  Report Type: 
  Country: None (occurrence: None)
  Receive Date: 20120710
  Receipt Date: 20120628
  Transmission Date: 20120928
  Serious: No
  Sender: FDA-Public Use
  Company Number: US-ASTRAZENECA-2012SE44044

PATIENT
  Age: 76 Year
  Sex: Female
  Weight: 83.9 kg

DRUGS (1)
  1. NEXIUM [Suspect]
     Route: 048

REACTIONS (4)
  - GASTROINTESTINAL BACTERIAL INFECTION [None]
  - HAEMORRHAGE [None]
  - DIARRHOEA [None]
  - VERTIGO [None]
